FAERS Safety Report 22539815 (Version 1)
Quarter: 2023Q2

REPORT INFORMATION
  Report Type: Spontaneous
  Country: US (occurrence: None)
  Receive Date: 20230607
  Receipt Date: 20230607
  Transmission Date: 20230722
  Serious: Yes (Other)
  Sender: FDA-Public Use
  Company Number: None

PATIENT
  Age: 5 Year
  Sex: Male
  Weight: 18.14 kg

DRUGS (9)
  1. HOMEOPATHICS [Suspect]
     Active Substance: ARNICA MONTANA\CAUSTICUM\COMFREY ROOT\HOMEOPATHICS\LEDUM PALUSTRE TWIG\PSEUDOGNAPHALIUM OBTUSIFOLIUM
     Indication: Abdominal discomfort
     Route: 048
     Dates: start: 202304, end: 202304
  2. HOMEOPATHICS [Suspect]
     Active Substance: ARNICA MONTANA\CAUSTICUM\COMFREY ROOT\HOMEOPATHICS\LEDUM PALUSTRE TWIG\PSEUDOGNAPHALIUM OBTUSIFOLIUM
     Indication: Abdominal pain
  3. SIHGULAIR [Concomitant]
  4. FLOVENT [Concomitant]
     Active Substance: FLUTICASONE PROPIONATE
  5. ALBUTERNOL [Concomitant]
  6. DEVICE [Concomitant]
     Active Substance: DEVICE
  7. ZYRTEC [Concomitant]
     Active Substance: CETIRIZINE HYDROCHLORIDE
  8. PROBIOTICS NOS [Concomitant]
     Active Substance: PROBIOTICS NOS
  9. VITAMINS [Concomitant]
     Active Substance: VITAMINS

REACTIONS (2)
  - Anaphylactic reaction [None]
  - Food allergy [None]
